FAERS Safety Report 14120354 (Version 1)
Quarter: 2017Q4

REPORT INFORMATION
  Report Type: Spontaneous
  Country: US (occurrence: US)
  Receive Date: 20171024
  Receipt Date: 20171024
  Transmission Date: 20180321
  Serious: No
  Sender: FDA-Public Use
  Company Number: US-PERRIGO-17US025301

PATIENT
  Age: 59 Year
  Sex: Female
  Weight: 56.69 kg

DRUGS (3)
  1. NICOTINE POLACRILEX [Suspect]
     Active Substance: NICOTINE
     Dosage: 4 MG, TID
     Route: 002
     Dates: start: 201707
  2. NICOTINE POLACRILEX [Suspect]
     Active Substance: NICOTINE
     Indication: SMOKING CESSATION THERAPY
     Dosage: 4 MG, EVERY 4 TO 8 HOURS, 3 TO 6 TIMES QD
     Route: 002
     Dates: start: 201604, end: 201707
  3. VITAMINS NOS [Concomitant]
     Active Substance: VITAMINS
     Indication: SUPPLEMENTATION THERAPY
     Dosage: UNK
     Route: 048

REACTIONS (1)
  - Nicotine dependence [Unknown]

NARRATIVE: CASE EVENT DATE: 201611
